FAERS Safety Report 6946097-6 (Version None)
Quarter: 2010Q3

REPORT INFORMATION
  Report Type: 
  Country: None (occurrence: None)
  Receive Date: 20100827
  Receipt Date: 20100818
  Transmission Date: 20110219
  Serious: Yes (Hospitalization)
  Sender: FDA-Public Use
  Company Number: US-ABBOTT-10P-163-0665090-00

PATIENT
  Sex: Male
  Weight: 68.1 kg

DRUGS (1)
  1. HUMIRA [Suspect]
     Indication: CROHN'S DISEASE
     Route: 058
     Dates: start: 20100401

REACTIONS (5)
  - ANAL FISTULA [None]
  - PROCTALGIA [None]
  - PURULENT DISCHARGE [None]
  - RECTAL ABSCESS [None]
  - WOUND ABSCESS [None]
